FAERS Safety Report 24046123 (Version 2)
Quarter: 2024Q3

REPORT INFORMATION
  Report Type: Spontaneous
  Country: US (occurrence: US)
  Receive Date: 20240703
  Receipt Date: 20240715
  Transmission Date: 20241016
  Serious: No
  Sender: VERO BIOTECH
  Company Number: US-VEROBIOTECH-2024USVEROSPO00129

PATIENT

DRUGS (1)
  1. GENOSYL [Suspect]
     Active Substance: NITRIC OXIDE
     Indication: Product used for unknown indication
     Dosage: 40 PPM

REACTIONS (1)
  - Underdose [Unknown]
